FAERS Safety Report 17935194 (Version 1)
Quarter: 2020Q2

REPORT INFORMATION
  Report Type: Spontaneous
  Country: US (occurrence: US)
  Receive Date: 20200615
  Receipt Date: 20200615
  Transmission Date: 20200714
  Serious: Yes (Hospitalization)
  Sender: FDA-Public Use
  Company Number: None

PATIENT
  Age: 70 Year
  Sex: Male
  Weight: 79.4 kg

DRUGS (11)
  1. GABAPENTIN. [Concomitant]
     Active Substance: GABAPENTIN
  2. VITAMIN A [Concomitant]
     Active Substance: VITAMIN A
  3. TORSEMIDE. [Concomitant]
     Active Substance: TORSEMIDE
  4. ATORVASTATIN [Suspect]
     Active Substance: ATORVASTATIN
     Route: 048
  5. BABY ASPIRIN ORAL [Concomitant]
     Route: 048
  6. CALCIUM CARBONATE. [Concomitant]
     Active Substance: CALCIUM CARBONATE
  7. FINASTERIDE. [Concomitant]
     Active Substance: FINASTERIDE
  8. INOTERSEN [Suspect]
     Active Substance: INOTERSEN SODIUM
  9. BACLOFEN. [Concomitant]
     Active Substance: BACLOFEN
  10. TAMSULOSIN [Concomitant]
     Active Substance: TAMSULOSIN
  11. WARFARIN [Concomitant]
     Active Substance: WARFARIN
     Route: 058

REACTIONS (7)
  - Blood pressure increased [None]
  - Palpitations [None]
  - Haemoglobin decreased [None]
  - Tachycardia [None]
  - Atrial flutter [None]
  - Dizziness [None]
  - International normalised ratio increased [None]

NARRATIVE: CASE EVENT DATE: 20200521
